FAERS Safety Report 23436100 (Version 2)
Quarter: 2024Q1

REPORT INFORMATION
  Report Type: Spontaneous
  Country: RO (occurrence: RO)
  Receive Date: 20240124
  Receipt Date: 20240322
  Transmission Date: 20240410
  Serious: Yes (Other)
  Sender: FDA-Public Use
  Company Number: RO-002147023-NVSC2024RO008611

PATIENT
  Age: 73 Year
  Sex: Female

DRUGS (1)
  1. BEOVU [Suspect]
     Active Substance: BROLUCIZUMAB-DBLL
     Indication: Neovascular age-related macular degeneration
     Dosage: 6 MG, QMO
     Route: 047
     Dates: start: 20230510, end: 20230828

REACTIONS (4)
  - Vitritis [Not Recovered/Not Resolved]
  - Visual acuity reduced [Not Recovered/Not Resolved]
  - Retinal vasculitis [Unknown]
  - Hypertension [Unknown]

NARRATIVE: CASE EVENT DATE: 20230828
